FAERS Safety Report 4348968-6 (Version None)
Quarter: 2004Q2

REPORT INFORMATION
  Report Type: 
  Country: None (occurrence: None)
  Receive Date: 20040427
  Receipt Date: 20040427
  Transmission Date: 20050107
  Serious: Yes (Hospitalization)
  Sender: FDA-Public Use
  Company Number: None

PATIENT
  Sex: Female
  Weight: 67.1324 kg

DRUGS (3)
  1. TAXOTERE [Suspect]
     Indication: BREAST CANCER
     Dosage: 177 MG/ 131 MG/ 98 MG Q 2 WKS = DOSES DECREASED
     Dates: start: 20040216
  2. TAXOTERE [Suspect]
     Indication: BREAST CANCER
     Dosage: 177 MG/ 131 MG/ 98 MG Q 2 WKS = DOSES DECREASED
     Dates: start: 20040315
  3. TAXOTERE [Suspect]
     Indication: BREAST CANCER
     Dosage: 177 MG/ 131 MG/ 98 MG Q 2 WKS = DOSES DECREASED
     Dates: start: 20040405

REACTIONS (4)
  - DEHYDRATION [None]
  - GASTROENTERITIS CLOSTRIDIAL [None]
  - NAUSEA [None]
  - VOMITING [None]
